FAERS Safety Report 6039827-1 (Version None)
Quarter: 2009Q1

REPORT INFORMATION
  Report Type: 
  Country: None (occurrence: None)
  Receive Date: 20090116
  Receipt Date: 20090107
  Transmission Date: 20090719
  Serious: Yes (Hospitalization)
  Sender: FDA-Public Use
  Company Number: US-BAYER-200819615GPV

PATIENT
  Age: 64 Year
  Sex: Male
  Weight: 90 kg

DRUGS (4)
  1. FLUDARA [Suspect]
     Indication: CHRONIC LYMPHOCYTIC LEUKAEMIA
     Route: 042
     Dates: start: 20080219, end: 20080223
  2. FLUDARA [Suspect]
     Route: 042
     Dates: end: 20080418
  3. FLUDARA [Suspect]
     Route: 042
     Dates: start: 20080520
  4. TAZOCIN [Concomitant]
     Indication: PYREXIA

REACTIONS (1)
  - RENAL FAILURE ACUTE [None]
